FAERS Safety Report 25619192 (Version 1)
Quarter: 2025Q3

REPORT INFORMATION
  Report Type: Spontaneous
  Country: GB (occurrence: GB)
  Receive Date: 20250729
  Receipt Date: 20250729
  Transmission Date: 20251020
  Serious: Yes (Life-Threatening, Other)
  Sender: GALPHARM INTERNATIONAL
  Company Number: None

PATIENT
  Age: 63 Year
  Sex: Female
  Weight: 98 kg

DRUGS (5)
  1. IBUPROFEN [Suspect]
     Active Substance: IBUPROFEN
     Indication: Ill-defined disorder
     Route: 065
  2. CETRABEN EMOLLIENT BATH ADDITIVE [Concomitant]
     Indication: Ill-defined disorder
     Route: 065
     Dates: start: 20250506, end: 20250605
  3. FLAMINAL HYDRO [Concomitant]
     Indication: Ill-defined disorder
     Route: 065
     Dates: start: 20250506, end: 20250605
  4. QV [CETYL ALCOHOL;DIMETICONE;METHYLPARABEN;STEARYL ALCOHOL] [Concomitant]
     Indication: Ill-defined disorder
     Route: 065
     Dates: start: 20250506, end: 20250605
  5. URGOCLEAN AG [Concomitant]
     Indication: Ill-defined disorder
     Route: 065
     Dates: start: 20250522, end: 20250605

REACTIONS (1)
  - Anaphylactic reaction [Recovered/Resolved]
